FAERS Safety Report 5859890-8 (Version None)
Quarter: 2008Q3

REPORT INFORMATION
  Report Type: 
  Country: None (occurrence: None)
  Receive Date: 20080827
  Receipt Date: 20080826
  Transmission Date: 20090109
  Serious: Yes (Death, Other)
  Sender: FDA-Public Use
  Company Number: JP-BRISTOL-MYERS SQUIBB COMPANY-14311765

PATIENT
  Age: 58 Year
  Sex: Female

DRUGS (4)
  1. TAXOL [Suspect]
     Indication: NON-SMALL CELL LUNG CANCER
     Route: 041
     Dates: start: 20080807, end: 20080807
  2. CARBOPLATIN [Suspect]
     Indication: NON-SMALL CELL LUNG CANCER
     Route: 041
     Dates: start: 20080807, end: 20080807
  3. ARAVA [Suspect]
     Indication: RHEUMATOID ARTHRITIS
     Route: 048
     Dates: end: 20080811
  4. ITRIZOLE [Suspect]
     Indication: ORAL CANDIDIASIS
     Route: 048
     Dates: start: 20080805, end: 20080811

REACTIONS (4)
  - AGRANULOCYTOSIS [None]
  - DISSEMINATED INTRAVASCULAR COAGULATION [None]
  - MULTI-ORGAN FAILURE [None]
  - SEPSIS [None]
